FAERS Safety Report 20809283 (Version 1)
Quarter: 2022Q2

REPORT INFORMATION
  Report Type: Spontaneous
  Country: US (occurrence: None)
  Receive Date: 20220509
  Receipt Date: 20220509
  Transmission Date: 20220720
  Serious: Yes (Life-Threatening, Hospitalization)
  Sender: FDA-Public Use
  Company Number: None

PATIENT
  Age: 82 Year
  Sex: Male
  Weight: 88 kg

DRUGS (1)
  1. DEXMEDETOMIDINE [Suspect]
     Active Substance: DEXMEDETOMIDINE
     Indication: Anaphylactic reaction
     Dosage: OTHER STRENGTH : 4 UG/ML;?

REACTIONS (4)
  - Blood pressure fluctuation [None]
  - Pulseless electrical activity [None]
  - Hypertension [None]
  - Hypotension [None]

NARRATIVE: CASE EVENT DATE: 20210927
